FAERS Safety Report 6321617-3 (Version None)
Quarter: 2009Q3

REPORT INFORMATION
  Report Type: 
  Country: None (occurrence: None)
  Receive Date: 20090819
  Receipt Date: 20090811
  Transmission Date: 20100115
  Serious: Yes (Disabling)
  Sender: FDA-Public Use
  Company Number: 2009009577

PATIENT
  Age: 60 Year
  Sex: Male

DRUGS (3)
  1. TRISENOX [Suspect]
     Indication: ACUTE PROMYELOCYTIC LEUKAEMIA
     Dosage: (12.9 MG), INTRAVENOUS
     Route: 042
     Dates: start: 20090623
  2. ATRACURIUM BESYLATE [Concomitant]
  3. OMEPRAZOLE [Concomitant]

REACTIONS (1)
  - PERICARDITIS [None]
